FAERS Safety Report 8911440 (Version 2)
Quarter: 2013Q3

REPORT INFORMATION
  Report Type: Spontaneous
  Country: PT (occurrence: PT)
  Receive Date: 20121116
  Receipt Date: 20130716
  Transmission Date: 20140515
  Serious: Yes (Death, Other)
  Sender: FDA-Public Use
  Company Number: PT-MILLENNIUM PHARMACEUTICALS, INC.-2012-07993

PATIENT
  Sex: 0

DRUGS (4)
  1. VELCADE [Suspect]
     Indication: PLASMA CELL MYELOMA
     Dosage: 1.3 MG/M2, UNK
     Route: 042
  2. MELPHALAN [Concomitant]
     Indication: PLASMA CELL MYELOMA
     Dosage: 9 MG/M2, UNK
  3. PREDNISOLONE [Concomitant]
     Indication: PLASMA CELL MYELOMA
     Dosage: 100 MG, UNK
  4. ACYCLOVIR                          /00587301/ [Concomitant]
     Indication: HERPES ZOSTER

REACTIONS (3)
  - Pneumonia [Fatal]
  - Bone marrow failure [Unknown]
  - Neuropathy peripheral [Unknown]
